FAERS Safety Report 5471816-8 (Version None)
Quarter: 2007Q3

REPORT INFORMATION
  Report Type: 
  Country: None (occurrence: None)
  Receive Date: 20070928
  Receipt Date: 20070607
  Transmission Date: 20080115
  Serious: No
  Sender: FDA-Public Use
  Company Number: US-BRISTOL-MYERS SQUIBB COMPANY-13807227

PATIENT
  Sex: Male
  Weight: 111 kg

DRUGS (5)
  1. DEFINITY [Suspect]
     Indication: ECHOCARDIOGRAM
     Route: 042
     Dates: start: 20070607, end: 20070607
  2. PLAVIX [Concomitant]
  3. LOVASTATIN [Concomitant]
  4. VITAMIN B COMPLEX CAP [Concomitant]
  5. ASPIRIN [Concomitant]

REACTIONS (3)
  - BACK PAIN [None]
  - HEADACHE [None]
  - MYALGIA [None]
